FAERS Safety Report 9619653 (Version 3)
Quarter: 2014Q1

REPORT INFORMATION
  Report Type: Report from Study
  Country: CA (occurrence: CA)
  Receive Date: 20131014
  Receipt Date: 20140210
  Transmission Date: 20141002
  Serious: Yes (Death, Hospitalization, Other)
  Sender: FDA-Public Use
  Company Number: PHHY2013CA053594

PATIENT
  Age: 67 Year
  Sex: Female

DRUGS (2)
  1. SANDOSTATIN LAR [Suspect]
     Indication: NEUROENDOCRINE TUMOUR
     Dosage: 30 MG, EVERY 4 WEEKS
     Route: 030
     Dates: start: 20130503
  2. SANDOSTATIN LAR [Suspect]
     Dosage: 80 MG, EVERY 4 WEEKS
     Route: 030
     Dates: end: 20131017

REACTIONS (4)
  - Death [Fatal]
  - Flushing [Unknown]
  - Hepatic neoplasm [Unknown]
  - Drug ineffective [Unknown]
